FAERS Safety Report 6585777-1 (Version None)
Quarter: 2010Q1

REPORT INFORMATION
  Report Type: 
  Country: None (occurrence: None)
  Receive Date: 20100204
  Receipt Date: 20100121
  Transmission Date: 20100710
  Serious: Yes (Other)
  Sender: FDA-Public Use
  Company Number: 2010S1000356

PATIENT
  Sex: Female

DRUGS (5)
  1. EZ PREP KIT [Suspect]
     Dosage: ;PO
     Route: 048
  2. PERCOCET [Concomitant]
  3. FLEXERIL [Concomitant]
  4. INSULIN [Concomitant]
  5. SELMA [Concomitant]

REACTIONS (4)
  - BLOOD CREATININE INCREASED [None]
  - DIALYSIS [None]
  - GLOMERULAR FILTRATION RATE DECREASED [None]
  - RENAL DISORDER [None]
